FAERS Safety Report 12743365 (Version 1)
Quarter: 2016Q3

REPORT INFORMATION
  Report Type: Report from Study
  Country: US (occurrence: US)
  Receive Date: 20160914
  Receipt Date: 20160914
  Transmission Date: 20161109
  Serious: Yes (Death, Other)
  Sender: FDA-Public Use
  Company Number: US-JNJFOC-20141218629

PATIENT
  Age: 59 Year
  Sex: Male

DRUGS (4)
  1. XARELTO [Suspect]
     Active Substance: RIVAROXABAN
     Indication: AORTIC VALVE DISEASE
     Route: 048
     Dates: start: 201404
  2. LEVAQUIN [Concomitant]
     Active Substance: LEVOFLOXACIN
     Indication: INFECTION PROPHYLAXIS
     Route: 065
  3. VALCYTE [Concomitant]
     Active Substance: VALGANCICLOVIR HYDROCHLORIDE
     Indication: INFECTION PROPHYLAXIS
     Route: 065
  4. XARELTO [Suspect]
     Active Substance: RIVAROXABAN
     Indication: AORTIC VALVE DISEASE
     Route: 048
     Dates: start: 20130410, end: 201401

REACTIONS (4)
  - Acute myeloid leukaemia [Fatal]
  - Myelodysplastic syndrome [Fatal]
  - Full blood count decreased [Not Recovered/Not Resolved]
  - Internal haemorrhage [Unknown]

NARRATIVE: CASE EVENT DATE: 201312
